FAERS Safety Report 8983087 (Version 1)
Quarter: 2012Q4

REPORT INFORMATION
  Report Type: Report from Study
  Country: GB (occurrence: GB)
  Receive Date: 20121224
  Receipt Date: 20121224
  Transmission Date: 20130627
  Serious: Yes (Other)
  Sender: FDA-Public Use
  Company Number: GB-ASTELLAS-2012EU011207

PATIENT
  Sex: Male

DRUGS (2)
  1. ENZALUTAMIDE [Suspect]
     Dosage: UNK
     Route: 065
  2. MORPHINE [Concomitant]
     Dosage: UNK
     Route: 065

REACTIONS (2)
  - Disturbance in attention [Unknown]
  - Disorientation [Unknown]
